FAERS Safety Report 24411342 (Version 3)
Quarter: 2024Q4

REPORT INFORMATION
  Report Type: Spontaneous
  Country: US (occurrence: US)
  Receive Date: 20241008
  Receipt Date: 20241114
  Transmission Date: 20250114
  Serious: No
  Sender: JOHNSON AND JOHNSON
  Company Number: US-JNJFOC-20241021952

PATIENT
  Age: 76 Year
  Sex: Male

DRUGS (3)
  1. IMODIUM [Suspect]
     Active Substance: LOPERAMIDE HYDROCHLORIDE
     Indication: Faeces soft
     Dosage: 1 ONCE A DAY?PRODUCT START DATE: SEVERAL YEARS AGO
     Route: 048
  2. GABAPENTIN [Concomitant]
     Active Substance: GABAPENTIN
     Indication: Headache
     Dosage: 1/600MG TWICE A DAY
     Route: 065
  3. GABAPENTIN [Concomitant]
     Active Substance: GABAPENTIN
     Indication: Neck pain

REACTIONS (2)
  - Incorrect product administration duration [Unknown]
  - Product quality issue [Unknown]
